FAERS Safety Report 4743708-0 (Version None)
Quarter: 2005Q3

REPORT INFORMATION
  Report Type: 
  Country: None (occurrence: None)
  Receive Date: 20050812
  Receipt Date: 20050801
  Transmission Date: 20060218
  Serious: Yes (Other)
  Sender: FDA-Public Use
  Company Number: 2005AC01155

PATIENT
  Age: 67 Year
  Sex: Male

DRUGS (4)
  1. BUPIVACAINE [Suspect]
     Indication: SPINAL ANAESTHESIA
     Route: 037
  2. BUPIVACAINE [Suspect]
     Indication: ARTERIAL BYPASS OPERATION
     Route: 037
  3. DILTIAZEM [Concomitant]
  4. MOLSIDOMINE [Concomitant]

REACTIONS (1)
  - DRUG EFFECT PROLONGED [None]
